FAERS Safety Report 8845030 (Version 1)
Quarter: 2012Q4

REPORT INFORMATION
  Report Type: 
  Country: IT (occurrence: IT)
  Receive Date: 20121017
  Receipt Date: 20121017
  Transmission Date: 20130627
  Serious: Yes (Life-Threatening)
  Sender: FDA-Public Use
  Company Number: IT-PFIZER INC-2012080127

PATIENT
  Age: 61 Year
  Sex: Female

DRUGS (1)
  1. PLATAMINE [Suspect]
     Indication: MESOTHELIOMA
     Dosage: 99.6 mg, total
     Route: 042
     Dates: start: 20120326, end: 20120326

REACTIONS (6)
  - Face oedema [Recovered/Resolved]
  - Throat irritation [Recovered/Resolved]
  - Erythema [Recovered/Resolved]
  - Hot flush [Recovered/Resolved]
  - Hypotension [Recovered/Resolved]
  - Vomiting [Recovered/Resolved]
